FAERS Safety Report 8486446-3 (Version None)
Quarter: 2012Q3

REPORT INFORMATION
  Report Type: 
  Country: None (occurrence: None)
  Receive Date: 20120703
  Receipt Date: 20120619
  Transmission Date: 20120928
  Serious: Yes (Hospitalization, Other)
  Sender: FDA-Public Use
  Company Number: ES-WATSON-2012-09534

PATIENT
  Age: 76 Year
  Sex: Male

DRUGS (3)
  1. METFORMIN HCL [Suspect]
     Indication: DIABETES MELLITUS
     Dosage: UNK
     Route: 048
  2. MACROLIDES [Suspect]
     Indication: GINGIVAL INFECTION
     Dosage: UNK
     Route: 065
  3. DICLOFENAC SODIUM [Suspect]
     Indication: GINGIVAL INFECTION
     Dosage: UNK
     Route: 065

REACTIONS (4)
  - LACTIC ACIDOSIS [None]
  - VOMITING [None]
  - RENAL FAILURE [None]
  - ANURIA [None]
